FAERS Safety Report 21959378 (Version 6)
Quarter: 2024Q4

REPORT INFORMATION
  Report Type: Spontaneous
  Country: US (occurrence: US)
  Receive Date: 20230206
  Receipt Date: 20241009
  Transmission Date: 20250115
  Serious: No
  Sender: PFIZER
  Company Number: US-PFIZER INC-202300053228

PATIENT
  Age: 74 Year
  Sex: Female
  Weight: 55.692 kg

DRUGS (6)
  1. IBRANCE [Suspect]
     Active Substance: PALBOCICLIB
     Indication: Breast cancer metastatic
     Dosage: 125 MG, CYCLIC
     Dates: end: 20221222
  2. IBRANCE [Suspect]
     Active Substance: PALBOCICLIB
     Dosage: 125 MG, DAILY
     Route: 048
     Dates: start: 20221222
  3. IBRANCE [Suspect]
     Active Substance: PALBOCICLIB
     Dosage: TAKES 1 TABLET EVERY DAY FOR 3 WEEKS, THEN 4TH WEEK RESTS
  4. ANASTROZOLE [Concomitant]
     Active Substance: ANASTROZOLE
     Indication: Breast cancer
     Dosage: 1 MG, 1X/DAY
     Route: 048
     Dates: start: 20221222
  5. OMEPRAZOLE [Concomitant]
     Active Substance: OMEPRAZOLE
     Indication: Gastrooesophageal reflux disease
     Dosage: UNK, 2X/DAY
     Dates: start: 202010
  6. LOTENSIN [Concomitant]
     Active Substance: BENAZEPRIL HYDROCHLORIDE
     Indication: Hypertension
     Dosage: 10 MG, DAILY
     Dates: start: 202010

REACTIONS (7)
  - Alopecia [Unknown]
  - Decreased appetite [Unknown]
  - Fatigue [Unknown]
  - Diarrhoea [Unknown]
  - Weight increased [Unknown]
  - Off label use [Unknown]
  - Product use issue [Unknown]
